FAERS Safety Report 10070950 (Version 2)
Quarter: 2014Q2

REPORT INFORMATION
  Report Type: Spontaneous
  Country: US (occurrence: US)
  Receive Date: 20140410
  Receipt Date: 20140519
  Transmission Date: 20141212
  Serious: Yes (Hospitalization, Disabling)
  Sender: FDA-Public Use
  Company Number: US-GE HEALTHCARE MEDICAL DIAGNOSTICS-HYPQ-PR-1404S-0001

PATIENT
  Age: 25 Year
  Sex: Male

DRUGS (2)
  1. HYPAQUE SODIUM ORAL [Suspect]
     Indication: INTERVERTEBRAL DISC PROTRUSION
     Route: 037
     Dates: start: 19760420, end: 19760420
  2. HYPAQUE SODIUM ORAL [Suspect]
     Indication: DIAGNOSTIC PROCEDURE

REACTIONS (12)
  - Arachnoiditis [Not Recovered/Not Resolved]
  - Feeling hot [Not Recovered/Not Resolved]
  - Hypoaesthesia [Not Recovered/Not Resolved]
  - Tremor [Not Recovered/Not Resolved]
  - Loss of consciousness [Recovered/Resolved]
  - Headache [Not Recovered/Not Resolved]
  - Spinal column stenosis [Not Recovered/Not Resolved]
  - Pseudarthrosis [Not Recovered/Not Resolved]
  - Hypertension [Not Recovered/Not Resolved]
  - Obesity [Not Recovered/Not Resolved]
  - Depression [Not Recovered/Not Resolved]
  - Ulnar nerve palsy [Not Recovered/Not Resolved]
